FAERS Safety Report 12014968 (Version 1)
Quarter: 2016Q1

REPORT INFORMATION
  Report Type: Report from Study
  Country: BE (occurrence: BE)
  Receive Date: 20160205
  Receipt Date: 20160205
  Transmission Date: 20160526
  Serious: Yes (Death)
  Sender: FDA-Public Use
  Company Number: BE-ABBVIE-15P-013-1498281-00

PATIENT
  Sex: Female

DRUGS (5)
  1. DUODOPA [Suspect]
     Active Substance: CARBIDOPA\LEVODOPA
     Dosage: AM=1 ML; CD=2.4ML/HR DURING 16HRS; ED=1ML
     Route: 050
     Dates: start: 20100201
  2. DUODOPA [Suspect]
     Active Substance: CARBIDOPA\LEVODOPA
     Dosage: AM=1.5ML; CD=1.6ML/HR DURING 16HRS; ED=1.2ML
     Route: 050
     Dates: start: 20151104
  3. DUODOPA [Suspect]
     Active Substance: CARBIDOPA\LEVODOPA
     Dosage: AM=1 ML; CD=1.6ML/HR DURING 16HRS; ED=1.2ML
     Route: 050
     Dates: start: 20150407, end: 20151104
  4. DUODOPA [Suspect]
     Active Substance: CARBIDOPA\LEVODOPA
     Indication: PARKINSON^S DISEASE
     Dosage: UNKNOWN
     Route: 050
     Dates: start: 20100111, end: 20100201
  5. DUODOPA [Suspect]
     Active Substance: CARBIDOPA\LEVODOPA
     Dosage: DOSES CONTINUOUSLY MONITORED AND ADAPTED
     Route: 050
     Dates: end: 20150407

REACTIONS (2)
  - Death [Fatal]
  - Therapeutic response delayed [Unknown]
